FAERS Safety Report 9272969 (Version 3)
Quarter: 2013Q2

REPORT INFORMATION
  Report Type: Spontaneous
  Country: GB (occurrence: GB)
  Receive Date: 20130506
  Receipt Date: 20130515
  Transmission Date: 20140414
  Serious: Yes (Other)
  Sender: FDA-Public Use
  Company Number: GB-ABBOTT-13P-167-1078032-00

PATIENT
  Age: 81 Year
  Sex: Male

DRUGS (2)
  1. PROSTAP SR 3.75 DCS [Suspect]
     Indication: PROSTATE CANCER
     Route: 058
     Dates: start: 20121231
  2. FLECAINIDE [Concomitant]
     Indication: ATRIAL FIBRILLATION
     Dates: start: 20051121

REACTIONS (3)
  - Myalgia [Recovering/Resolving]
  - Hyperhidrosis [Not Recovered/Not Resolved]
  - Inflammatory marker increased [Recovering/Resolving]
